FAERS Safety Report 25973290 (Version 1)
Quarter: 2025Q4

REPORT INFORMATION
  Report Type: Spontaneous
  Country: EU (occurrence: EU)
  Receive Date: 20251029
  Receipt Date: 20251029
  Transmission Date: 20260118
  Serious: Yes (Other)
  Sender: TAKEDA
  Company Number: EU-TAKEDA-2025TUS092401

PATIENT
  Sex: Female

DRUGS (3)
  1. ENTYVIO [Suspect]
     Active Substance: VEDOLIZUMAB
     Indication: Product used for unknown indication
     Dosage: UNK
  2. ENTYVIO [Suspect]
     Active Substance: VEDOLIZUMAB
     Indication: Product used for unknown indication
     Dosage: 108 MILLIGRAM, Q2WEEKS
  3. ENTYVIO [Suspect]
     Active Substance: VEDOLIZUMAB

REACTIONS (7)
  - Dry age-related macular degeneration [Unknown]
  - Cataract [Unknown]
  - Neovascular age-related macular degeneration [Unknown]
  - Skin irritation [Unknown]
  - Alopecia [Unknown]
  - Erythema [Unknown]
  - Pain in extremity [Unknown]
